FAERS Safety Report 5423595-8 (Version None)
Quarter: 2007Q3

REPORT INFORMATION
  Report Type: 
  Country: None (occurrence: None)
  Receive Date: 20070823
  Receipt Date: 20070821
  Transmission Date: 20080115
  Serious: Yes (Other)
  Sender: FDA-Public Use
  Company Number: JP-AVENTIS-200712234JP

PATIENT
  Age: 1 Year

DRUGS (1)
  1. LASIX [Suspect]
     Route: 048

REACTIONS (1)
  - PSEUDO-BARTTER SYNDROME [None]
